FAERS Safety Report 22520760 (Version 1)
Quarter: 2023Q2

REPORT INFORMATION
  Report Type: Spontaneous
  Country: CN (occurrence: CN)
  Receive Date: 20230605
  Receipt Date: 20230605
  Transmission Date: 20230721
  Serious: Yes (Hospitalization)
  Sender: FDA-Public Use
  Company Number: CN-ELI_LILLY_AND_COMPANY-CN202305016558

PATIENT
  Sex: Female
  Weight: 52 kg

DRUGS (1)
  1. ABEMACICLIB [Suspect]
     Active Substance: ABEMACICLIB
     Indication: Breast cancer
     Dosage: 150 MG, BID
     Route: 048
     Dates: start: 20230412, end: 20230515

REACTIONS (4)
  - Myelosuppression [Unknown]
  - Aspartate aminotransferase abnormal [Unknown]
  - COVID-19 [Unknown]
  - Alanine aminotransferase abnormal [Unknown]
